FAERS Safety Report 4839187-5 (Version None)
Quarter: 2005Q4

REPORT INFORMATION
  Report Type: 
  Country: None (occurrence: None)
  Receive Date: 20051128
  Receipt Date: 20051128
  Transmission Date: 20060501
  Serious: Yes (Life-Threatening, Hospitalization, Other)
  Sender: FDA-Public Use
  Company Number: None

PATIENT
  Age: 71 Year
  Sex: Female
  Weight: 93.441 kg

DRUGS (9)
  1. ALLOPURINOL [Suspect]
     Indication: URATE NEPHROPATHY
     Dosage: PRIOR TO ADMISSION
  2. LASIX [Concomitant]
  3. SPIRONOLACTONE [Concomitant]
  4. LISINOPRIL [Concomitant]
  5. ASPIRIN [Concomitant]
  6. COREG [Concomitant]
  7. PROTONIX [Concomitant]
  8. PRAVACHOL [Concomitant]
  9. POTASSIUM [Concomitant]

REACTIONS (2)
  - STEVENS-JOHNSON SYNDROME [None]
  - URINARY TRACT INFECTION [None]
